FAERS Safety Report 23621618 (Version 4)
Quarter: 2024Q2

REPORT INFORMATION
  Report Type: Other
  Country: US (occurrence: None)
  Receive Date: 20240312
  Receipt Date: 20240515
  Transmission Date: 20240716
  Serious: Yes (Other)
  Sender: FDA-Public Use
  Company Number: US-ROCHE-3522943

PATIENT

DRUGS (4)
  1. XOLAIR [Suspect]
     Active Substance: OMALIZUMAB
     Indication: Urticaria
     Route: 065
     Dates: start: 202010, end: 202105
  2. XOLAIR [Suspect]
     Active Substance: OMALIZUMAB
     Indication: Asthma
  3. XOLAIR [Suspect]
     Active Substance: OMALIZUMAB
     Indication: Fatigue
  4. PREDNISONE [Concomitant]
     Active Substance: PREDNISONE

REACTIONS (8)
  - Anaphylactic reaction [Unknown]
  - Skin burning sensation [Unknown]
  - Lung disorder [Unknown]
  - Cardiac disorder [Unknown]
  - Nervous system disorder [Unknown]
  - Pharyngeal swelling [Unknown]
  - Fatigue [Unknown]
  - Pruritus [Unknown]
